FAERS Safety Report 17815073 (Version 1)
Quarter: 2020Q2

REPORT INFORMATION
  Report Type: Spontaneous
  Country: US (occurrence: US)
  Receive Date: 20200521
  Receipt Date: 20200521
  Transmission Date: 20200714
  Serious: No
  Sender: FDA-Public Use
  Company Number: None

PATIENT
  Age: 43 Year
  Sex: Male

DRUGS (1)
  1. SODIUM CHLOR NEB 7% (4MLX50* [Suspect]
     Active Substance: SODIUM CHLORIDE
     Dosage: ?          OTHER DOSE:ONE VIAL;?
     Route: 055

REACTIONS (1)
  - Hepatic enzyme increased [None]

NARRATIVE: CASE EVENT DATE: 20200521
